FAERS Safety Report 25738695 (Version 1)
Quarter: 2025Q3

REPORT INFORMATION
  Report Type: Report from Study
  Country: EU (occurrence: EU)
  Receive Date: 20250829
  Receipt Date: 20250829
  Transmission Date: 20251021
  Serious: Yes (Hospitalization, Other)
  Sender: SANDOZ
  Company Number: EU-SANDOZ-SDZ2024PT080845

PATIENT
  Age: 48 Year
  Sex: Male

DRUGS (2)
  1. HYRIMOZ [Suspect]
     Active Substance: ADALIMUMAB-ADAZ
     Indication: Psoriasis
     Dosage: 40 MG, Q2W; 40MG/0,4ML - W0 2INJ;
     Route: 058
     Dates: start: 20240816
  2. HYRIMOZ [Suspect]
     Active Substance: ADALIMUMAB-ADAZ
     Dosage: 40 MG, Q2W; W1 1 INJ EVERY 2/2 WEEKS
     Route: 058
     Dates: end: 202501

REACTIONS (4)
  - Respiratory distress [Recovered/Resolved]
  - Respiratory tract infection [Not Recovered/Not Resolved]
  - Dyspnoea [Recovered/Resolved]
  - Back pain [Recovered/Resolved]

NARRATIVE: CASE EVENT DATE: 20240801
